FAERS Safety Report 4660721-2 (Version None)
Quarter: 2005Q2

REPORT INFORMATION
  Report Type: 
  Country: None (occurrence: None)
  Receive Date: 20050511
  Receipt Date: 20050427
  Transmission Date: 20051028
  Serious: Yes (Hospitalization)
  Sender: FDA-Public Use
  Company Number: 2005BI005668

PATIENT
  Age: 50 Year
  Sex: Female

DRUGS (22)
  1. AVONEX [Suspect]
     Indication: MULTIPLE SCLEROSIS
     Dosage: 30 UG;QW; IM
     Route: 030
     Dates: start: 20011105, end: 20040101
  2. AVONEX [Suspect]
     Indication: MULTIPLE SCLEROSIS
     Dosage: 30 UG;QW; IM
     Route: 030
     Dates: start: 20040101
  3. MECLIZINE [Concomitant]
  4. ACCOLATE [Concomitant]
  5. FLAXSEED OIL [Concomitant]
  6. MULTI-VITAMIN [Concomitant]
  7. MAXAIR [Concomitant]
  8. FLONASE [Concomitant]
  9. PREMARIN [Concomitant]
  10. MOTRIN [Concomitant]
  11. PROVIGIL [Concomitant]
  12. DETROL [Concomitant]
  13. TOPROL-XL [Concomitant]
  14. ZANTAC [Concomitant]
  15. COMPAZINE [Concomitant]
  16. DIOVAN [Concomitant]
  17. AMBIEN [Concomitant]
  18. AMITRYPTILLINE [Concomitant]
  19. TYLENOL W/ CODEINE NO. 4 [Concomitant]
  20. CALCIUM GLUCONATE [Concomitant]
  21. HYTRIN [Concomitant]
  22. OPC3 [Concomitant]

REACTIONS (10)
  - BACK PAIN [None]
  - CYST [None]
  - INTERVERTEBRAL DISC DEGENERATION [None]
  - INTERVERTEBRAL DISC PROTRUSION [None]
  - LIGAMENT DISORDER [None]
  - LIGAMENT LAXITY [None]
  - NERVE ROOT COMPRESSION [None]
  - OSTEOARTHRITIS [None]
  - SPINAL COLUMN STENOSIS [None]
  - SPINAL DISORDER [None]
